FAERS Safety Report 25434142 (Version 1)
Quarter: 2025Q2

REPORT INFORMATION
  Report Type: Spontaneous
  Country: UA (occurrence: UA)
  Receive Date: 20250613
  Receipt Date: 20250613
  Transmission Date: 20250716
  Serious: Yes (Death)
  Sender: MYLAN
  Company Number: UA-MYLANLABS-2025M1049761

PATIENT
  Age: 71 Year
  Sex: Male

DRUGS (6)
  1. PRETOMANID [Suspect]
     Active Substance: PRETOMANID
     Indication: Tuberculosis
     Dosage: 1 DOSAGE FORM, QD
     Dates: start: 20241219, end: 20250512
  2. PRETOMANID [Suspect]
     Active Substance: PRETOMANID
     Indication: Disseminated tuberculosis
  3. LINEZOLID [Suspect]
     Active Substance: LINEZOLID
     Indication: Tuberculosis
     Dosage: 1 DOSAGE FORM, QD
     Dates: start: 20241219, end: 20250512
  4. LINEZOLID [Suspect]
     Active Substance: LINEZOLID
     Indication: Disseminated tuberculosis
  5. BEDAQUILINE [Suspect]
     Active Substance: BEDAQUILINE
     Indication: Tuberculosis
     Dosage: 2 DOSAGE FORM, 3XW
     Dates: start: 20241219, end: 20250512
  6. BEDAQUILINE [Suspect]
     Active Substance: BEDAQUILINE
     Indication: Disseminated tuberculosis

REACTIONS (1)
  - Tuberculosis [Fatal]

NARRATIVE: CASE EVENT DATE: 20250512
